FAERS Safety Report 10984217 (Version 1)
Quarter: 2015Q2

REPORT INFORMATION
  Report Type: Spontaneous
  Country: US (occurrence: US)
  Receive Date: 20150403
  Receipt Date: 20150403
  Transmission Date: 20150821
  Serious: Yes (Hospitalization, Other)
  Sender: FDA-Public Use
  Company Number: US-UNITED THERAPEUTICS-UNT-2015-003065

PATIENT
  Age: 75 Year
  Sex: Female
  Weight: 104.31 kg

DRUGS (5)
  1. FERROUS GLUCONATE [Concomitant]
     Active Substance: FERROUS GLUCONATE
     Indication: ANAEMIA
  2. TRACLEER [Concomitant]
     Active Substance: BOSENTAN\BOSENTAN MONOHYDRATE
     Indication: PRODUCT USED FOR UNKNOWN INDICATION
  3. LEVAQUIN [Suspect]
     Active Substance: LEVOFLOXACIN
     Indication: PRODUCT USED FOR UNKNOWN INDICATION
  4. CAUMADIN [Concomitant]
     Active Substance: WARFARIN SODIUM
     Indication: PRODUCT USED FOR UNKNOWN INDICATION
  5. REMODULIN [Suspect]
     Active Substance: TREPROSTINIL
     Indication: PULMONARY ARTERIAL HYPERTENSION
     Dosage: 0.093 ?G/KG, CONTINUING
     Route: 041
     Dates: start: 20110902

REACTIONS (9)
  - Loss of consciousness [Unknown]
  - Tongue oedema [Unknown]
  - Asthenia [Unknown]
  - Anaemia [Unknown]
  - Hypersensitivity [Unknown]
  - Fall [Unknown]
  - Nausea [Unknown]
  - Abdominal pain upper [Unknown]
  - Vomiting [Unknown]

NARRATIVE: CASE EVENT DATE: 201502
